FAERS Safety Report 4372119-5 (Version None)
Quarter: 2004Q2

REPORT INFORMATION
  Report Type: 
  Country: None (occurrence: None)
  Receive Date: 20040603
  Receipt Date: 20040603
  Transmission Date: 20050107
  Serious: Yes (Hospitalization)
  Sender: FDA-Public Use
  Company Number: None

PATIENT
  Sex: Male
  Weight: 93.441 kg

DRUGS (11)
  1. ASPIRIN [Suspect]
     Indication: ANALGESIC EFFECT
     Dosage: ORAL
     Route: 048
     Dates: start: 20040201, end: 20040311
  2. ALPROSTADIL [Concomitant]
  3. GLIPIZIDE [Concomitant]
  4. FUROSEMIDE [Concomitant]
  5. GEMFIBROZIL [Concomitant]
  6. ATENOLOL [Concomitant]
  7. DIPHENHYDRAMINE HCL [Concomitant]
  8. FOSINOPRIL SODIUM [Concomitant]
  9. OMEPRAZOLE [Concomitant]
  10. LEVOTHYROXINE SODIUM [Concomitant]
  11. BUPROPION HCL [Concomitant]

REACTIONS (15)
  - ACUTE RESPIRATORY FAILURE [None]
  - AGITATION [None]
  - ALCOHOL WITHDRAWAL SYNDROME [None]
  - ANALGESIC DRUG LEVEL INCREASED [None]
  - CARDIAC FAILURE CONGESTIVE [None]
  - HEPATITIS ALCOHOLIC [None]
  - HYPERKALAEMIA [None]
  - METABOLIC ACIDOSIS [None]
  - MYOCARDIAL INFARCTION [None]
  - PLATELET COUNT DECREASED [None]
  - PNEUMONIA [None]
  - PULMONARY EMBOLISM [None]
  - RENAL FAILURE [None]
  - RESPIRATORY ALKALOSIS [None]
  - TRANSIENT ISCHAEMIC ATTACK [None]
